FAERS Safety Report 5879861-5 (Version None)
Quarter: 2008Q3

REPORT INFORMATION
  Report Type: 
  Country: None (occurrence: None)
  Receive Date: 20080911
  Receipt Date: 20080911
  Transmission Date: 20090109
  Serious: No
  Sender: FDA-Public Use
  Company Number: None

PATIENT
  Age: 81 Year
  Sex: Female
  Weight: 62.5964 kg

DRUGS (1)
  1. LANOXIN [Suspect]
     Indication: CARDIAC FAILURE
     Dosage: 1 TABLET PER DAY
     Dates: start: 20080601

REACTIONS (2)
  - MUSCLE SPASMS [None]
  - MYALGIA [None]
